FAERS Safety Report 8453321-X (Version None)
Quarter: 2012Q2

REPORT INFORMATION
  Report Type: 
  Country: None (occurrence: None)
  Receive Date: 20120620
  Receipt Date: 20120511
  Transmission Date: 20120825
  Serious: No
  Sender: FDA-Public Use
  Company Number: US-VERTEX PHARMACEUTICALS INC.-AE-2012-007043

PATIENT
  Sex: Male
  Weight: 99.88 kg

DRUGS (5)
  1. PEGASYS [Concomitant]
     Indication: HEPATITIS C
     Route: 058
     Dates: start: 20120508
  2. RIBAVIRIN [Concomitant]
     Indication: HEPATITIS C
     Route: 048
     Dates: start: 20120508
  3. FENTANYL-100 [Concomitant]
     Indication: ARTHRALGIA
  4. DILAUDID [Concomitant]
     Indication: BREAKTHROUGH PAIN
     Route: 048
  5. INCIVEK [Suspect]
     Indication: HEPATITIS C
     Route: 048
     Dates: start: 20120508

REACTIONS (2)
  - FATIGUE [None]
  - HYPERSOMNIA [None]
